FAERS Safety Report 9089940 (Version 2)
Quarter: 2013Q1

REPORT INFORMATION
  Report Type: Spontaneous
  Country: US (occurrence: US)
  Receive Date: 20130218
  Receipt Date: 20130221
  Transmission Date: 20140127
  Serious: Yes (Hospitalization, Other)
  Sender: FDA-Public Use
  Company Number: US-009507513-1302USA006740

PATIENT
  Age: 66 Year
  Sex: Female
  Weight: 65.76 kg

DRUGS (12)
  1. MIRALAX [Suspect]
     Indication: CONSTIPATION
     Dosage: UNK, UNKNOWN
     Route: 048
     Dates: start: 20120813, end: 20120913
  2. LAMICTAL [Concomitant]
     Indication: BIPOLAR DISORDER
  3. ABILIFY [Concomitant]
     Indication: BIPOLAR DISORDER
  4. KLONOPIN [Concomitant]
     Indication: BIPOLAR DISORDER
  5. NEURONTIN [Concomitant]
     Indication: BIPOLAR DISORDER
  6. PAXIL [Concomitant]
     Indication: BIPOLAR DISORDER
  7. ASPIRIN [Concomitant]
     Indication: BIPOLAR DISORDER
  8. CITRUCEL (METHYLCELLULOSE) [Concomitant]
     Indication: BIPOLAR DISORDER
  9. VITAMINS (UNSPECIFIED) [Concomitant]
     Indication: BIPOLAR DISORDER
  10. VANCOMYCIN [Concomitant]
     Indication: GASTROINTESTINAL INFECTION
  11. CARAFATE [Concomitant]
     Indication: GASTRIC ULCER
  12. ANTIMICROBIAL (UNSPECIFIED) [Concomitant]
     Indication: PNEUMONIA

REACTIONS (6)
  - Gastrointestinal infection [Recovered/Resolved]
  - Peptic ulcer [Unknown]
  - Pain [Recovered/Resolved]
  - Abdominal discomfort [Recovered/Resolved]
  - Malaise [Unknown]
  - Incorrect drug administration duration [Unknown]
